FAERS Safety Report 9018023 (Version 1)
Quarter: 2013Q1

REPORT INFORMATION
  Report Type: Spontaneous
  Country: US (occurrence: None)
  Receive Date: 20130110
  Receipt Date: 20130110
  Transmission Date: 20140127
  Serious: Yes (Hospitalization)
  Sender: FDA-Public Use
  Company Number: None

PATIENT
  Age: 44 Year
  Sex: Male
  Weight: 151.96 kg

DRUGS (2)
  1. DULOXETINE [Suspect]
     Indication: ALCOHOLISM
     Dosage: 40 MG, 20 MG, 2X/DAY, ORAL
     Route: 048
  2. PREGABALIN [Suspect]
     Indication: ALCOHOLISM
     Dosage: 300 MG, 150 MG, 2X/DAY, ORAL
     Route: 048

REACTIONS (3)
  - Influenza like illness [None]
  - Dyspnoea [None]
  - Cardiac failure congestive [None]
